FAERS Safety Report 9128841 (Version 3)
Quarter: 2013Q1

REPORT INFORMATION
  Report Type: Spontaneous
  Country: SE (occurrence: SE)
  Receive Date: 20130228
  Receipt Date: 20130315
  Transmission Date: 20140127
  Serious: Yes (Other)
  Sender: FDA-Public Use
  Company Number: SE-BAYER-2013-022047

PATIENT
  Age: 21 Year
  Sex: Female

DRUGS (1)
  1. QLAIRA [Suspect]
     Indication: CONTRACEPTION
     Dosage: UNK
     Dates: start: 20120830, end: 20130214

REACTIONS (2)
  - Subcutaneous abscess [Recovered/Resolved]
  - Facial pain [Recovered/Resolved]
